FAERS Safety Report 9253249 (Version 1)
Quarter: 2013Q2

REPORT INFORMATION
  Report Type: Spontaneous
  Country: US (occurrence: US)
  Receive Date: 20130424
  Receipt Date: 20130424
  Transmission Date: 20140414
  Serious: Yes (Hospitalization)
  Sender: FDA-Public Use
  Company Number: PHHY2013US040130

PATIENT
  Age: 39 Year
  Sex: Female

DRUGS (1)
  1. ZIPRASIDONE [Suspect]
     Dosage: 60 MG, BID

REACTIONS (15)
  - Neuroleptic malignant syndrome [Recovering/Resolving]
  - Renal failure acute [Recovering/Resolving]
  - Rhabdomyolysis [Recovering/Resolving]
  - Metabolic acidosis [Recovering/Resolving]
  - Pyrexia [Recovering/Resolving]
  - Diarrhoea [Recovering/Resolving]
  - Mental status changes [Recovering/Resolving]
  - Hypotension [Recovering/Resolving]
  - Tachycardia [Recovering/Resolving]
  - Blood pressure fluctuation [Recovering/Resolving]
  - Heart rate irregular [Recovering/Resolving]
  - Abdominal tenderness [Recovering/Resolving]
  - Muscle rigidity [Recovering/Resolving]
  - Myalgia [Recovering/Resolving]
  - Leukocytosis [Recovering/Resolving]
